FAERS Safety Report 25870418 (Version 1)
Quarter: 2025Q4

REPORT INFORMATION
  Report Type: Report from Study
  Country: US (occurrence: US)
  Receive Date: 20251001
  Receipt Date: 20251001
  Transmission Date: 20260117
  Serious: Yes (Other)
  Sender: ELI LILLY AND COMPANY
  Company Number: US-ELI_LILLY_AND_COMPANY-US202507008473

PATIENT
  Age: 61 Year
  Sex: Female

DRUGS (2)
  1. KISUNLA [Suspect]
     Active Substance: DONANEMAB-AZBT
     Indication: Product used for unknown indication
     Dosage: UNK, UNKNOWN (FIRST INFUSION)
     Route: 065
     Dates: start: 20250626
  2. KISUNLA [Suspect]
     Active Substance: DONANEMAB-AZBT
     Dosage: UNK, UNKNOWN (2ND INFUSION)
     Route: 065
     Dates: start: 20250721, end: 20250721

REACTIONS (9)
  - Oxygen saturation decreased [Recovered/Resolved]
  - Multiple sclerosis [Unknown]
  - Abnormal dreams [Unknown]
  - Dizziness postural [Unknown]
  - Heart rate increased [Recovering/Resolving]
  - Swelling face [Recovered/Resolved]
  - Eye swelling [Recovered/Resolved]
  - Flushing [Recovering/Resolving]
  - Blood pressure increased [Recovered/Resolved]

NARRATIVE: CASE EVENT DATE: 20250721
